FAERS Safety Report 6416866-X (Version None)
Quarter: 2009Q4

REPORT INFORMATION
  Report Type: 
  Country: None (occurrence: None)
  Receive Date: 20091023
  Receipt Date: 20091008
  Transmission Date: 20100525
  Serious: Yes (Hospitalization)
  Sender: FDA-Public Use
  Company Number: IDA-00238

PATIENT
  Age: 71 Year
  Sex: Male

DRUGS (8)
  1. INDERAL [Suspect]
     Indication: ESSENTIAL TREMOR
     Dosage: 10 MG DAILY ORAL FORMULATION: TABLET
     Route: 048
     Dates: start: 20090707, end: 20090720
  2. URSODIOL [Suspect]
     Indication: LIVER DISORDER
     Dosage: 100 MG TID ORAL FORMULATION: TABLET
     Route: 048
     Dates: start: 20090601, end: 20090720
  3. CINACALCET HYDROCHLORIDE [Suspect]
     Dosage: 25 MG DAILY ORAL FORMULATION: TABLET
     Route: 048
     Dates: start: 20090718, end: 20090720
  4. LASIX [Suspect]
     Indication: RENAL FAILURE
     Dosage: 40 MG BID ORAL FORMULATION: TABLET
     Route: 048
     Dates: end: 20090720
  5. OMEPRAZOLE [Concomitant]
  6. CALTAN (CALCIUM CARBONATE) [Concomitant]
  7. ALINAMIN0F (FURSULTIAMINE) [Concomitant]
  8. WARFARIN SODIUM [Concomitant]

REACTIONS (12)
  - ABDOMINAL PAIN [None]
  - ASPHYXIA [None]
  - BLOOD ALKALINE PHOSPHATASE INCREASED [None]
  - DECREASED APPETITE [None]
  - DEPRESSED LEVEL OF CONSCIOUSNESS [None]
  - DIALYSIS [None]
  - ESSENTIAL TREMOR [None]
  - HYPERPHOSPHATAEMIA [None]
  - HYPOGLYCAEMIA [None]
  - LIVER DISORDER [None]
  - RENAL FAILURE [None]
  - RENAL FAILURE CHRONIC [None]
